FAERS Safety Report 7043945-9 (Version None)
Quarter: 2010Q4

REPORT INFORMATION
  Report Type: 
  Country: None (occurrence: None)
  Receive Date: 20101008
  Receipt Date: 20101008
  Transmission Date: 20110411
  Serious: Yes (Other)
  Sender: FDA-Public Use
  Company Number: None

PATIENT
  Age: 8 Year
  Sex: Female
  Weight: 28.123 kg

DRUGS (1)
  1. ADVAIR DISKUS 100/50 [Suspect]
     Indication: ASTHMA
     Dosage: 2 PUFFS 1 X A DAY UNK
     Dates: start: 20100918, end: 20101001

REACTIONS (3)
  - ABDOMINAL PAIN UPPER [None]
  - CRYING [None]
  - WHEEZING [None]
